FAERS Safety Report 8214024-X (Version None)
Quarter: 2012Q1

REPORT INFORMATION
  Report Type: 
  Country: None (occurrence: None)
  Receive Date: 20120316
  Receipt Date: 20120313
  Transmission Date: 20120608
  Serious: No
  Sender: FDA-Public Use
  Company Number: US-PFIZER INC-2012066582

PATIENT
  Sex: Male
  Weight: 70.748 kg

DRUGS (5)
  1. CHLORTHALIDONE [Concomitant]
     Indication: HYPERTENSION
     Dosage: 25 MG, UNK
  2. PROCARDIA XL [Suspect]
     Dosage: 60 MG, 2X/DAY
     Route: 048
     Dates: start: 20120101, end: 20120201
  3. PROCARDIA XL [Suspect]
     Indication: HYPERTENSION
     Dosage: 30 MG, 2X/DAY
     Route: 048
     Dates: start: 20111101, end: 20120101
  4. ACETYLSALICYLIC ACID [Concomitant]
     Dosage: 81 MG, UNK
  5. LOSARTAN [Concomitant]
     Indication: HYPERTENSION
     Dosage: 50 MG, UNK

REACTIONS (2)
  - NAUSEA [None]
  - WRONG TECHNIQUE IN DRUG USAGE PROCESS [None]
